FAERS Safety Report 7747321-2 (Version None)
Quarter: 2011Q3

REPORT INFORMATION
  Report Type: 
  Country: None (occurrence: None)
  Receive Date: 20110913
  Receipt Date: 20110906
  Transmission Date: 20111222
  Serious: Yes (Other)
  Sender: FDA-Public Use
  Company Number: US-BRISTOL-MYERS SQUIBB COMPANY-16034266

PATIENT
  Age: 73 Year
  Sex: Male

DRUGS (2)
  1. LOVENOX [Suspect]
     Indication: PROPHYLAXIS
     Dosage: 1DF=100 MG/ML. INJECTION SOLUTION
     Route: 051
     Dates: start: 20110801, end: 20110819
  2. COUMADIN [Suspect]
     Dosage: 5MG:UNK-05AUG11, 15MG:15AUG11-16AUG11, 10MG:16AUG11-18AUG11, 15MG:19AUG11-ONG.

REACTIONS (2)
  - THERAPEUTIC RESPONSE DECREASED [None]
  - TRANSIENT ISCHAEMIC ATTACK [None]
